FAERS Safety Report 25313587 (Version 1)
Quarter: 2025Q2

REPORT INFORMATION
  Report Type: Spontaneous
  Country: NL (occurrence: NL)
  Receive Date: 20250514
  Receipt Date: 20250514
  Transmission Date: 20250717
  Serious: Yes (Hospitalization)
  Sender: ELI LILLY AND COMPANY
  Company Number: NL-ELI_LILLY_AND_COMPANY-NL202505006288

PATIENT
  Age: 63 Year
  Sex: Male

DRUGS (4)
  1. SELPERCATINIB [Suspect]
     Active Substance: SELPERCATINIB
     Indication: Medullary thyroid cancer
     Route: 065
     Dates: start: 20221117
  2. TRAMADOL [Suspect]
     Active Substance: TRAMADOL
     Indication: Product used for unknown indication
     Route: 065
  3. METFORMIN [Concomitant]
     Active Substance: METFORMIN HYDROCHLORIDE
     Indication: Product used for unknown indication
     Route: 065
     Dates: end: 202407
  4. AMLODIPINE [Concomitant]
     Active Substance: AMLODIPINE BESYLATE
     Indication: Product used for unknown indication
     Route: 065
     Dates: end: 202407

REACTIONS (10)
  - Renal impairment [Recovering/Resolving]
  - Hypercalcaemia [Recovering/Resolving]
  - Dehydration [Recovering/Resolving]
  - Post procedural complication [Unknown]
  - Somnolence [Unknown]
  - Confusional state [Unknown]
  - Angiopathy [Unknown]
  - Urinary tract infection [Unknown]
  - Fatigue [Unknown]
  - Abdominal discomfort [Unknown]

NARRATIVE: CASE EVENT DATE: 20240709
